FAERS Safety Report 20043665 (Version 2)
Quarter: 2022Q1

REPORT INFORMATION
  Report Type: Spontaneous
  Country: US (occurrence: US)
  Receive Date: 20211108
  Receipt Date: 20220209
  Transmission Date: 20220423
  Serious: No
  Sender: FDA-Public Use
  Company Number: US-VYNE PHARMACEUTICALS INC-2021-VYNE-US003320

PATIENT

DRUGS (1)
  1. AMZEEQ [Suspect]
     Active Substance: MINOCYCLINE HYDROCHLORIDE
     Indication: Acne
     Dosage: UNK
     Route: 065
     Dates: start: 2021

REACTIONS (2)
  - Acne [Unknown]
  - Drug ineffective [Unknown]

NARRATIVE: CASE EVENT DATE: 20210101
